FAERS Safety Report 8542579-4 (Version None)
Quarter: 2012Q3

REPORT INFORMATION
  Report Type: 
  Country: None (occurrence: None)
  Receive Date: 20120726
  Receipt Date: 20120717
  Transmission Date: 20120928
  Serious: Yes (Hospitalization)
  Sender: FDA-Public Use
  Company Number: FI-009507513-1110FIN00011

PATIENT

DRUGS (10)
  1. ENTACAPONE [Interacting]
     Indication: PARKINSON'S DISEASE
     Dosage: 1 G, QD
     Route: 048
     Dates: start: 20090306
  2. JANUVIA [Suspect]
     Indication: DIABETES MELLITUS
     Dosage: 100 MG, QD
     Route: 048
     Dates: start: 20110217, end: 20110516
  3. RETAFER [Concomitant]
     Dosage: 100 MG, UNK
     Route: 048
  4. MADOPAR QUICK [Interacting]
     Indication: PARKINSON'S DISEASE
     Dosage: UNK UNK, QD
     Route: 048
     Dates: start: 20090901
  5. SINEMET [Interacting]
     Indication: PARKINSON'S DISEASE
     Dosage: UNK UNK, QD
     Route: 048
     Dates: start: 20060306
  6. SINEMET [Interacting]
     Dosage: UNK UNK, QD
     Route: 048
     Dates: start: 20060306
  7. COHEMIN DEPOT [Concomitant]
     Indication: PERNICIOUS ANAEMIA
     Route: 030
     Dates: start: 20100215
  8. FUROSEMIDE [Concomitant]
     Dosage: 40 MG, UNK
  9. REQUIP CR [Interacting]
     Indication: PARKINSON'S DISEASE
     Dosage: 24 MG, QD
     Route: 048
     Dates: start: 20091130
  10. ASPIRIN AND DIPYRIDAMOLE [Concomitant]
     Dosage: UNK UNK, QD
     Route: 030
     Dates: start: 20090306

REACTIONS (6)
  - NAUSEA [None]
  - VOMITING [None]
  - FALL [None]
  - DRUG INTERACTION [None]
  - WEIGHT DECREASED [None]
  - OEDEMA [None]
